FAERS Safety Report 7665224 (Version 2)
Quarter: 2013Q4

REPORT INFORMATION
  Report Type: Spontaneous
  Country: US (occurrence: US)
  Receive Date: 20101112
  Receipt Date: 20131030
  Transmission Date: 20140711
  Serious: No
  Sender: FDA-Public Use
  Company Number: US-BIOGENIDEC-2010BI038906

PATIENT
  Age: 58 Year
  Sex: Female

DRUGS (2)
  1. AVONEX [Suspect]
     Indication: MULTIPLE SCLEROSIS
     Route: 030
     Dates: start: 19970301
  2. AVONEX [Suspect]
     Indication: MULTIPLE SCLEROSIS
     Route: 030
     Dates: start: 20060815

REACTIONS (20)
  - Amnesia [Unknown]
  - Stress [Not Recovered/Not Resolved]
  - Menopause [Not Recovered/Not Resolved]
  - Memory impairment [Not Recovered/Not Resolved]
  - Gait disturbance [Not Recovered/Not Resolved]
  - Blood calcium decreased [Not Recovered/Not Resolved]
  - Keloid scar [Not Recovered/Not Resolved]
  - Eye disorder [Not Recovered/Not Resolved]
  - Exostosis [Recovered/Resolved]
  - Traumatic arthritis [Recovered/Resolved]
  - Ligament injury [Recovered/Resolved]
  - Arthropathy [Not Recovered/Not Resolved]
  - Fear [Not Recovered/Not Resolved]
  - Tearfulness [Not Recovered/Not Resolved]
  - Coordination abnormal [Not Recovered/Not Resolved]
  - Fatigue [Not Recovered/Not Resolved]
  - Insomnia [Unknown]
  - Depression [Not Recovered/Not Resolved]
  - Muscle spasticity [Not Recovered/Not Resolved]
  - Pyrexia [Not Recovered/Not Resolved]
